FAERS Safety Report 12256804 (Version 2)
Quarter: 2016Q2

REPORT INFORMATION
  Report Type: Spontaneous
  Country: US (occurrence: US)
  Receive Date: 20160412
  Receipt Date: 20160524
  Transmission Date: 20160815
  Serious: Yes (Other)
  Sender: FDA-Public Use
  Company Number: US-GLAXOSMITHKLINE-US2016047598

PATIENT
  Sex: Female

DRUGS (19)
  1. VENTOLIN [Concomitant]
     Active Substance: ALBUTEROL SULFATE
  2. BENZONATATE. [Concomitant]
     Active Substance: BENZONATATE
  3. CEFDINIR. [Concomitant]
     Active Substance: CEFDINIR
  4. MUCINEX [Concomitant]
     Active Substance: GUAIFENESIN
  5. LACTULOSE. [Concomitant]
     Active Substance: LACTULOSE
  6. NEXIUM [Concomitant]
     Active Substance: ESOMEPRAZOLE MAGNESIUM
  7. DOCUSATE [Concomitant]
     Active Substance: DOCUSATE
  8. BUSPIRONE [Concomitant]
     Active Substance: BUSPIRONE HYDROCHLORIDE
  9. DILTIAZEM [Concomitant]
     Active Substance: DILTIAZEM
  10. ONDANSETRON [Concomitant]
     Active Substance: ONDANSETRON
  11. SUCRALFATE. [Concomitant]
     Active Substance: SUCRALFATE
  12. ADVAIR DISKUS [Suspect]
     Active Substance: FLUTICASONE PROPIONATE\SALMETEROL XINAFOATE
     Indication: CHRONIC OBSTRUCTIVE PULMONARY DISEASE
     Dosage: 250/50 MCG, 1 PUFF, BID
     Route: 055
  13. ALBUTEROL NEBULIZER [Concomitant]
     Active Substance: ALBUTEROL
  14. ASPIRIN. [Concomitant]
     Active Substance: ASPIRIN
  15. FLUCONAZOLE. [Concomitant]
     Active Substance: FLUCONAZOLE
  16. MAGNESIUM [Concomitant]
     Active Substance: MAGNESIUM
  17. ADVIL [Concomitant]
     Active Substance: IBUPROFEN
  18. IPRATROPIUM NEBULIZER [Concomitant]
  19. NYSTATIN. [Concomitant]
     Active Substance: NYSTATIN

REACTIONS (3)
  - Choking [Unknown]
  - Feeling abnormal [Unknown]
  - Product quality issue [Unknown]
